FAERS Safety Report 23191902 (Version 6)
Quarter: 2025Q2

REPORT INFORMATION
  Report Type: Other
  Country: US (occurrence: US)
  Receive Date: 20231116
  Receipt Date: 20250407
  Transmission Date: 20250717
  Serious: No
  Sender: TRAVERE THERAPEUTICS
  Company Number: US-TRAVERE-2023TVT00636

PATIENT
  Age: 52 Year
  Sex: Female

DRUGS (4)
  1. FILSPARI [Suspect]
     Active Substance: SPARSENTAN
     Indication: IgA nephropathy
     Dosage: 400 MG
     Route: 048
     Dates: start: 20231011
  2. FILSPARI [Suspect]
     Active Substance: SPARSENTAN
     Indication: Chronic kidney disease
  3. FILSPARI [Suspect]
     Active Substance: SPARSENTAN
     Indication: Proteinuria
  4. JARDIANCE [Suspect]
     Active Substance: EMPAGLIFLOZIN
     Indication: Product used for unknown indication
     Dates: start: 202501

REACTIONS (6)
  - Hypotension [Unknown]
  - Headache [Unknown]
  - Chromaturia [Unknown]
  - Peripheral swelling [Unknown]
  - Inappropriate schedule of product administration [Unknown]
  - Nausea [Unknown]

NARRATIVE: CASE EVENT DATE: 20250101
